FAERS Safety Report 15293062 (Version 2)
Quarter: 2018Q4

REPORT INFORMATION
  Report Type: Spontaneous
  Country: IT (occurrence: IT)
  Receive Date: 20180820
  Receipt Date: 20180907
  Transmission Date: 20190204
  Serious: Yes (Other)
  Sender: FDA-Public Use
  Company Number: IT-SUN PHARMACEUTICAL INDUSTRIES LTD-2018R1-181626

PATIENT
  Age: 64 Year
  Sex: Female

DRUGS (2)
  1. OXALIPLATINO SUN [Suspect]
     Active Substance: OXALIPLATIN
     Indication: RECTAL CANCER
     Dosage: 150 MG CYCLICAL
     Route: 042
     Dates: start: 20180712, end: 20180712
  2. CAPECITABINE ACCORD 300 MG FILM-COATED TABLETS [Suspect]
     Active Substance: CAPECITABINE
     Indication: RECTAL CANCER
     Dosage: 2 G, DAILY
     Route: 048

REACTIONS (1)
  - Haematemesis [Recovered/Resolved]

NARRATIVE: CASE EVENT DATE: 20180712
